FAERS Safety Report 8135981-6 (Version None)
Quarter: 2012Q1

REPORT INFORMATION
  Report Type: 
  Country: None (occurrence: None)
  Receive Date: 20120209
  Receipt Date: 20120201
  Transmission Date: 20120608
  Serious: Yes (Other)
  Sender: FDA-Public Use
  Company Number: 2012SP006174

PATIENT
  Sex: Male

DRUGS (2)
  1. RIBAVIRIN [Suspect]
     Indication: HEPATITIS C
     Dates: start: 20110107, end: 20110708
  2. PEGASYS [Suspect]
     Indication: HEPATITIS C
     Dates: start: 20110107, end: 20110708

REACTIONS (3)
  - HEPATIC CIRRHOSIS [None]
  - DRUG INEFFECTIVE [None]
  - VIRAL LOAD [None]
